FAERS Safety Report 9839308 (Version 2)
Quarter: 2014Q1

REPORT INFORMATION
  Report Type: Spontaneous
  Country: DK (occurrence: DK)
  Receive Date: 20140123
  Receipt Date: 20140207
  Transmission Date: 20141002
  Serious: Yes (Hospitalization)
  Sender: FDA-Public Use
  Company Number: PHHY2014DK007307

PATIENT
  Age: 49 Year
  Sex: Female

DRUGS (1)
  1. GILENYA [Suspect]
     Indication: MULTIPLE SCLEROSIS
     Route: 048
     Dates: start: 20130314, end: 20140117

REACTIONS (9)
  - Multiple sclerosis relapse [Not Recovered/Not Resolved]
  - Central nervous system lesion [Unknown]
  - Speech disorder [Unknown]
  - Dysarthria [Unknown]
  - Dysphagia [Unknown]
  - Gait disturbance [Unknown]
  - Nystagmus [Unknown]
  - Coordination abnormal [Unknown]
  - Ataxia [Unknown]
